FAERS Safety Report 8226659-9 (Version None)
Quarter: 2012Q1

REPORT INFORMATION
  Report Type: 
  Country: None (occurrence: None)
  Receive Date: 20120322
  Receipt Date: 20120314
  Transmission Date: 20120608
  Serious: Yes (Hospitalization)
  Sender: FDA-Public Use
  Company Number: ES-BRISTOL-MYERS SQUIBB COMPANY-15425374

PATIENT
  Age: 74 Year
  Sex: Male
  Weight: 63 kg

DRUGS (4)
  1. CISPLATIN [Suspect]
     Indication: NON-SMALL CELL LUNG CANCER STAGE IV
     Dosage: CYCLE 3,LAST DOSE ON 28OCT10
     Route: 042
     Dates: start: 20100907, end: 20101105
  2. NECITUMUMAB [Suspect]
     Indication: NON-SMALL CELL LUNG CANCER STAGE IV
     Dosage: LIQUID,CYCLE 3,INTERR BEFORE WITHDRAWN,LAST DOSE ON 28OCT10
     Route: 042
     Dates: start: 20100907, end: 20101105
  3. ALIMTA [Suspect]
     Indication: NON-SMALL CELL LUNG CANCER STAGE IV
     Dosage: VIAL;CYCLE 3,LAST DOSE ON 28OCT10
     Route: 042
     Dates: start: 20100907, end: 20101105
  4. HYGROTON [Concomitant]
     Indication: HYPERTENSION

REACTIONS (2)
  - ENTEROCOCCAL INFECTION [None]
  - DIZZINESS POSTURAL [None]
